FAERS Safety Report 6647601-8 (Version None)
Quarter: 2010Q1

REPORT INFORMATION
  Report Type: 
  Country: None (occurrence: None)
  Receive Date: 20100323
  Receipt Date: 20100323
  Transmission Date: 20100710
  Serious: Yes (Other)
  Sender: FDA-Public Use
  Company Number: None

PATIENT
  Sex: Female
  Weight: 81.6475 kg

DRUGS (15)
  1. HUMIRA [Suspect]
     Dosage: 40 MG/0.8ML
  2. CALTRATE [Concomitant]
  3. ALBUTEROL AER [Concomitant]
  4. FLONASE SPR [Concomitant]
  5. VITAMIN C [Concomitant]
  6. LEVOTHYROXINE SODIUM [Concomitant]
  7. CRESTOR [Concomitant]
  8. ASCORBIC ACD [Concomitant]
  9. FISH OIL [Concomitant]
  10. CALCIUM + D [Concomitant]
  11. VITAMIN B-12 [Concomitant]
  12. MULTI VIT [Concomitant]
  13. LYMPHOMYOSOT [Concomitant]
  14. ZYFLO [Concomitant]
  15. ESTROVEN [Concomitant]

REACTIONS (4)
  - HYPOAESTHESIA FACIAL [None]
  - HYPOAESTHESIA ORAL [None]
  - LIP SWELLING [None]
  - ORAL MUCOSAL DISCOLOURATION [None]
